FAERS Safety Report 6768508-1 (Version None)
Quarter: 2010Q2

REPORT INFORMATION
  Report Type: 
  Country: None (occurrence: None)
  Receive Date: 20100614
  Receipt Date: 20100603
  Transmission Date: 20101027
  Serious: Yes (Other)
  Sender: FDA-Public Use
  Company Number: JP-PFIZER INC-2010060800

PATIENT
  Age: 65 Year
  Sex: Female

DRUGS (3)
  1. LIPITOR [Suspect]
     Indication: HYPERCHOLESTEROLAEMIA
     Dosage: 10 MG, UID/ 1X/DAY
     Route: 048
     Dates: start: 20091019, end: 20100427
  2. URSO 250 [Concomitant]
     Indication: HEPATIC STEATOSIS
     Dosage: UNK
     Route: 048
     Dates: start: 20100215
  3. URSO 250 [Concomitant]
     Indication: GAMMA-GLUTAMYLTRANSFERASE INCREASED

REACTIONS (8)
  - ALANINE AMINOTRANSFERASE INCREASED [None]
  - ASPARTATE AMINOTRANSFERASE INCREASED [None]
  - BLOOD CHOLESTEROL INCREASED [None]
  - EYELID OEDEMA [None]
  - GAMMA-GLUTAMYLTRANSFERASE INCREASED [None]
  - HEPATIC FUNCTION ABNORMAL [None]
  - LOW DENSITY LIPOPROTEIN INCREASED [None]
  - RHABDOMYOLYSIS [None]
